FAERS Safety Report 7898317-1 (Version None)
Quarter: 2011Q4

REPORT INFORMATION
  Report Type: 
  Country: None (occurrence: None)
  Receive Date: 20111107
  Receipt Date: 20111026
  Transmission Date: 20120403
  Serious: Yes (Hospitalization)
  Sender: FDA-Public Use
  Company Number: KR-PFIZER INC-2011157683

PATIENT
  Age: 66 Year
  Sex: Male
  Weight: 61 kg

DRUGS (4)
  1. ISOSORBIDE DINITRATE [Concomitant]
     Indication: ANGINA PECTORIS
     Dosage: 1 TABLET
     Route: 048
     Dates: start: 20100718
  2. VASTINAN [Concomitant]
     Indication: ANGINA PECTORIS
     Dosage: 1 TABLET
     Route: 048
     Dates: start: 20100718
  3. TEMSIROLIMUS [Suspect]
     Indication: RENAL CELL CARCINOMA
     Dosage: 25 MG, WEEKLY
     Route: 042
     Dates: start: 20100503
  4. HERBEN SR [Concomitant]
     Indication: ANGINA PECTORIS
     Dosage: UNK
     Dates: start: 20101005

REACTIONS (1)
  - PRINZMETAL ANGINA [None]
